FAERS Safety Report 9998202 (Version 3)
Quarter: 2014Q3

REPORT INFORMATION
  Report Type: Spontaneous
  Country: US (occurrence: US)
  Receive Date: 20140311
  Receipt Date: 20140731
  Transmission Date: 20150326
  Serious: Yes (Other)
  Sender: FDA-Public Use
  Company Number: CHPA2012US025056

PATIENT
  Age: 87 Year
  Sex: Female

DRUGS (5)
  1. BENEFIBER [Suspect]
     Active Substance: STARCH, WHEAT
     Indication: CONSTIPATION
     Dosage: 2 TSP, IN THE MORNING ONLY
     Route: 048
     Dates: start: 201106
  2. BENEFIBER [Suspect]
     Active Substance: STARCH, WHEAT
     Indication: NUTRITIONAL SUPPLEMENTATION
     Dosage: 2 TSP, IN THE MORNING ONLY
     Route: 048
     Dates: start: 201107
  3. FIBERCON [Concomitant]
     Active Substance: CALCIUM POLYCARBOPHIL
  4. BENEFIBER [Suspect]
     Active Substance: STARCH, WHEAT
     Indication: OFF LABEL USE
  5. GAS-X [Suspect]
     Active Substance: DIMETHICONE
     Indication: FLATULENCE
     Dosage: 1 DF, PRN
     Route: 048

REACTIONS (5)
  - Incorrect dose administered [Unknown]
  - Therapeutic response changed [Unknown]
  - Hip fracture [Recovered/Resolved]
  - Fall [Recovered/Resolved]
  - Constipation [Recovering/Resolving]

NARRATIVE: CASE EVENT DATE: 201106
